FAERS Safety Report 21124545 (Version 1)
Quarter: 2022Q3

REPORT INFORMATION
  Report Type: Spontaneous
  Country: US (occurrence: US)
  Receive Date: 20220725
  Receipt Date: 20220725
  Transmission Date: 20221027
  Serious: Yes (Other)
  Sender: FDA-Public Use
  Company Number: US-Shilpa Medicare Limited-SML-US-2022-00814

PATIENT
  Age: 70 Year
  Sex: Male

DRUGS (2)
  1. DOCETAXEL [Suspect]
     Active Substance: DOCETAXEL
     Indication: Laryngeal squamous cell carcinoma
     Dosage: FIRST CYCLE
  2. CARBOPLATIN [Suspect]
     Active Substance: CARBOPLATIN
     Indication: Laryngeal squamous cell carcinoma
     Dosage: FIRST CYCLE

REACTIONS (1)
  - Acute febrile neutrophilic dermatosis [Recovered/Resolved]
